FAERS Safety Report 15126975 (Version 1)
Quarter: 2018Q3

REPORT INFORMATION
  Report Type: Spontaneous
  Country: US (occurrence: US)
  Receive Date: 20180710
  Receipt Date: 20180710
  Transmission Date: 20181010
  Serious: Yes (Other)
  Sender: FDA-Public Use
  Company Number: US-SA-2017SA248769

PATIENT
  Age: 64 Year
  Sex: Female
  Weight: 107.95 kg

DRUGS (18)
  1. ULTRAM [TRAMADOL HYDROCHLORIDE] [Concomitant]
  2. VOLTAREN [DICLOFENAC] [Concomitant]
     Active Substance: DICLOFENAC SODIUM
  3. ATIVAN [Concomitant]
     Active Substance: LORAZEPAM
  4. POTASSIUM [Concomitant]
     Active Substance: POTASSIUM
  5. GABAPENTIN. [Concomitant]
     Active Substance: GABAPENTIN
  6. TAXOTERE [Suspect]
     Active Substance: DOCETAXEL
     Dosage: UNK UNK,Q3W
     Route: 051
     Dates: start: 20101124, end: 20101124
  7. TAXOL [Concomitant]
     Active Substance: PACLITAXEL
  8. MOMETASONE FUROATE. [Concomitant]
     Active Substance: MOMETASONE FUROATE
  9. COENZYME Q10 [Concomitant]
     Active Substance: UBIDECARENONE
  10. MAGNESIUM OXIDE. [Concomitant]
     Active Substance: MAGNESIUM OXIDE
  11. FOLIC ACID. [Concomitant]
     Active Substance: FOLIC ACID
  12. HYDROCHLOROTHIAZIDE. [Concomitant]
     Active Substance: HYDROCHLOROTHIAZIDE
  13. FISH OIL [Concomitant]
     Active Substance: FISH OIL
  14. AMBIEN [Concomitant]
     Active Substance: ZOLPIDEM TARTRATE
  15. NEOSAR [Concomitant]
     Active Substance: CYCLOPHOSPHAMIDE
  16. TAXOTERE [Suspect]
     Active Substance: DOCETAXEL
     Indication: BREAST CANCER FEMALE
     Dosage: UNK UNK,Q3W
     Route: 042
     Dates: start: 20100811, end: 20110811
  17. FERROUS SULFATE. [Concomitant]
     Active Substance: FERROUS SULFATE
  18. HYDROCODONE/PARACETAMOL [Concomitant]
     Active Substance: ACETAMINOPHEN\HYDROCODONE BITARTRATE

REACTIONS (1)
  - Alopecia [Recovering/Resolving]
